FAERS Safety Report 9204750 (Version 1)
Quarter: 2013Q2

REPORT INFORMATION
  Report Type: Spontaneous
  Country: US (occurrence: US)
  Receive Date: 20130402
  Receipt Date: 20130402
  Transmission Date: 20140414
  Serious: Yes (Other)
  Sender: FDA-Public Use
  Company Number: US-GLAXOSMITHKLINE-A0987606A

PATIENT
  Age: 56 Year
  Sex: Female
  Weight: 62.7 kg

DRUGS (8)
  1. TYKERB [Suspect]
     Indication: BREAST CANCER METASTATIC
     Dosage: 1500MG PER DAY
     Route: 048
  2. HUMALOG [Concomitant]
  3. MOTRIN [Concomitant]
  4. AROMASIN [Concomitant]
  5. LANTUS [Concomitant]
  6. OXYCODONE [Concomitant]
  7. XGEVA [Concomitant]
  8. HERCEPTIN [Concomitant]

REACTIONS (4)
  - Brain neoplasm [Unknown]
  - Malignant neoplasm progression [Unknown]
  - Stomatitis [Unknown]
  - Drug ineffective [Unknown]
